FAERS Safety Report 8509665 (Version 3)
Quarter: 2012Q4

REPORT INFORMATION
  Report Type: 
  Country: US (occurrence: US)
  Receive Date: 20120413
  Receipt Date: 20120828
  Transmission Date: 20130627
  Serious: Yes (Other)
  Sender: FDA-Public Use
  Company Number: US-PFIZER INC-2012090317

PATIENT
  Age: 49 Year
  Sex: Female

DRUGS (2)
  1. CHANTIX [Suspect]
     Dosage: UNK, 2x/day
     Dates: start: 200608, end: 200612
  2. ZESTRIL [Concomitant]
     Indication: BLOOD PRESSURE
     Dosage: 20 mg, UNK

REACTIONS (4)
  - Depression [Not Recovered/Not Resolved]
  - Abnormal behaviour [Not Recovered/Not Resolved]
  - Personality change [Unknown]
  - Nausea [Unknown]
